FAERS Safety Report 13718241 (Version 1)
Quarter: 2017Q3

REPORT INFORMATION
  Report Type: Spontaneous
  Country: US (occurrence: US)
  Receive Date: 20170705
  Receipt Date: 20170705
  Transmission Date: 20171127
  Serious: Yes (Other)
  Sender: FDA-Public Use
  Company Number: US-PFIZER INC-2017281696

PATIENT
  Age: 59 Year
  Sex: Female

DRUGS (2)
  1. METHOTREXATE SODIUM. [Suspect]
     Active Substance: METHOTREXATE SODIUM
     Dosage: UNK
  2. XELJANZ XR [Suspect]
     Active Substance: TOFACITINIB CITRATE
     Dosage: 11 MG, UNK

REACTIONS (8)
  - Breast cancer [Unknown]
  - Arthralgia [Unknown]
  - Foot deformity [Unknown]
  - Post procedural infection [Unknown]
  - Joint swelling [Unknown]
  - Blood test abnormal [Unknown]
  - Bone marrow oedema [Unknown]
  - Bone contusion [Unknown]

NARRATIVE: CASE EVENT DATE: 20170211
